FAERS Safety Report 21756035 (Version 1)
Quarter: 2022Q4

REPORT INFORMATION
  Report Type: Spontaneous
  Country: US (occurrence: None)
  Receive Date: 20221220
  Receipt Date: 20221220
  Transmission Date: 20230112
  Serious: Yes (Life-Threatening, Hospitalization)
  Sender: FDA-Public Use
  Company Number: None

PATIENT
  Age: 39 Year
  Sex: Female

DRUGS (1)
  1. PROHANCE [Suspect]
     Active Substance: GADOTERIDOL
     Indication: Magnetic resonance imaging
     Dosage: FREQUENCY : ONCE;?
     Route: 042
     Dates: start: 20221206, end: 20221206

REACTIONS (5)
  - Wheezing [None]
  - Respiratory distress [None]
  - Chest pain [None]
  - Dyspnoea [None]
  - Contrast media reaction [None]

NARRATIVE: CASE EVENT DATE: 20221206
